FAERS Safety Report 6774508-8 (Version None)
Quarter: 2010Q2

REPORT INFORMATION
  Report Type: 
  Country: None (occurrence: None)
  Receive Date: 20100617
  Receipt Date: 20100609
  Transmission Date: 20101027
  Serious: Yes (Hospitalization)
  Sender: FDA-Public Use
  Company Number: PHHO2010US08419

PATIENT
  Sex: Male
  Weight: 76.4 kg

DRUGS (2)
  1. STI571/CGP57148B T35717+CAPS [Suspect]
     Indication: ACUTE LYMPHOCYTIC LEUKAEMIA
     Dosage: UNK
     Dates: start: 20041029
  2. STI571/CGP57148B T35717+CAPS [Suspect]
     Dosage: 400 MG, QD
     Dates: start: 20050401, end: 20100310

REACTIONS (3)
  - BLOOD CREATININE INCREASED [None]
  - RENAL FAILURE [None]
  - THROMBOTIC MICROANGIOPATHY [None]
